FAERS Safety Report 5975389-2 (Version None)
Quarter: 2008Q4

REPORT INFORMATION
  Report Type: 
  Country: None (occurrence: None)
  Receive Date: 20081202
  Receipt Date: 20080108
  Transmission Date: 20090506
  Serious: Yes (Hospitalization, Other)
  Sender: FDA-Public Use
  Company Number: US-AMGEN-QUU259727

PATIENT
  Sex: Female

DRUGS (3)
  1. ENBREL [Suspect]
     Indication: PSORIASIS
     Route: 058
     Dates: start: 20030311
  2. ENBREL [Suspect]
     Indication: PSORIATIC ARTHROPATHY
  3. METHOTREXATE [Concomitant]

REACTIONS (7)
  - ANAEMIA [None]
  - DIABETIC NEUROPATHY [None]
  - INFECTION [None]
  - INJECTION SITE PAIN [None]
  - PNEUMONIA [None]
  - POOR PERIPHERAL CIRCULATION [None]
  - PSORIASIS [None]
